FAERS Safety Report 6476495-9 (Version None)
Quarter: 2009Q4

REPORT INFORMATION
  Report Type: 
  Country: None (occurrence: None)
  Receive Date: 20091207
  Receipt Date: 20091124
  Transmission Date: 20100525
  Serious: Yes (Congenital Anomaly)
  Sender: FDA-Public Use
  Company Number: ES-JNJFOC-20091107980

PATIENT

DRUGS (2)
  1. REMICADE [Suspect]
     Indication: DRUG EXPOSURE DURING PREGNANCY
     Route: 042
  2. CORTICOSTEROIDS [Concomitant]
     Indication: DRUG EXPOSURE DURING PREGNANCY
     Route: 042

REACTIONS (3)
  - CONGENITAL MUSCULOSKELETAL ANOMALY [None]
  - HYPOGLYCAEMIA [None]
  - SPINA BIFIDA [None]
